FAERS Safety Report 6898188-6 (Version None)
Quarter: 2010Q3

REPORT INFORMATION
  Report Type: 
  Country: None (occurrence: None)
  Receive Date: 20100802
  Receipt Date: 20070914
  Transmission Date: 20110219
  Serious: No
  Sender: FDA-Public Use
  Company Number: US-PFIZER INC-2007077942

PATIENT
  Sex: Female
  Weight: 95.3 kg

DRUGS (4)
  1. LYRICA [Suspect]
     Indication: BACK PAIN
     Dates: start: 20070715
  2. CORTISONE ACETATE [Suspect]
     Indication: BACK PAIN
  3. TYLENOL [Concomitant]
  4. IBUPROFEN [Concomitant]

REACTIONS (2)
  - VISION BLURRED [None]
  - WEIGHT DECREASED [None]
